FAERS Safety Report 16451303 (Version 1)
Quarter: 2019Q2

REPORT INFORMATION
  Report Type: Spontaneous
  Country: FR (occurrence: FR)
  Receive Date: 20190619
  Receipt Date: 20190619
  Transmission Date: 20190711
  Serious: Yes (Hospitalization)
  Sender: FDA-Public Use
  Company Number: FR-PFIZER INC-2019257020

PATIENT
  Age: 98 Year
  Sex: Female
  Weight: 54 kg

DRUGS (4)
  1. SERESTA [Suspect]
     Active Substance: OXAZEPAM
     Dosage: 10 MG, 1X/DAY
     Route: 048
  2. LYRICA [Suspect]
     Active Substance: PREGABALIN
     Dosage: 25 MG, 1X/DAY
     Route: 048
     Dates: start: 20190429
  3. DUROGESIC [Suspect]
     Active Substance: FENTANYL
     Dosage: 50 UG, 1X/DAY
     Route: 062
     Dates: start: 20190430
  4. AMLOR [Suspect]
     Active Substance: AMLODIPINE BESYLATE
     Indication: HYPERTENSION
     Dosage: 10 MG, 1X/DAY
     Route: 048

REACTIONS (1)
  - Fall [Recovered/Resolved with Sequelae]

NARRATIVE: CASE EVENT DATE: 20190502
